FAERS Safety Report 19783370 (Version 8)
Quarter: 2022Q1

REPORT INFORMATION
  Report Type: Spontaneous
  Country: CA (occurrence: CA)
  Receive Date: 20210903
  Receipt Date: 20220331
  Transmission Date: 20220423
  Serious: Yes (Other)
  Sender: FDA-Public Use
  Company Number: CA-CELLTRION INC.-2021CA011768

PATIENT

DRUGS (24)
  1. INFLECTRA [Suspect]
     Active Substance: INFLIXIMAB-DYYB
     Indication: Psoriatic arthropathy
     Dosage: 500 MG, 0, 2, 6 THEN EVERY 8 WEEKS
     Route: 041
     Dates: start: 20201224
  2. INFLECTRA [Suspect]
     Active Substance: INFLIXIMAB-DYYB
     Indication: Ankylosing spondylitis
     Dosage: 500 MG, 0, 2, 6 THEN EVERY 8 WEEKS
     Route: 041
     Dates: start: 20210401
  3. INFLECTRA [Suspect]
     Active Substance: INFLIXIMAB-DYYB
     Dosage: 500 MG, 0, 2, 6 THEN EVERY 8 WEEKS
     Route: 041
     Dates: start: 20210528
  4. INFLECTRA [Suspect]
     Active Substance: INFLIXIMAB-DYYB
     Dosage: 500 MG, 0, 2, 6 THEN EVERY 8 WEEKS
     Route: 041
     Dates: start: 20210528
  5. INFLECTRA [Suspect]
     Active Substance: INFLIXIMAB-DYYB
     Dosage: 600 MG EVERY 6 WEEKS
     Route: 042
     Dates: start: 20210712, end: 20220218
  6. INFLECTRA [Suspect]
     Active Substance: INFLIXIMAB-DYYB
     Dosage: 600 MG EVERY 6 WEEKS
     Route: 041
     Dates: start: 20210820
  7. INFLECTRA [Suspect]
     Active Substance: INFLIXIMAB-DYYB
     Dosage: 600 MG EVERY 6 WEEKS
     Route: 041
     Dates: start: 20211004
  8. INFLECTRA [Suspect]
     Active Substance: INFLIXIMAB-DYYB
     Dosage: 600 MG EVERY 6 WEEKS
     Route: 041
     Dates: start: 20211112
  9. INFLECTRA [Suspect]
     Active Substance: INFLIXIMAB-DYYB
     Dosage: 600 MG EVERY 6 WEEKS
     Route: 042
     Dates: start: 20220218
  10. INFLECTRA [Suspect]
     Active Substance: INFLIXIMAB-DYYB
     Dosage: 600 MG EVERY 6 WEEKS
     Dates: start: 20220218
  11. INFLECTRA [Suspect]
     Active Substance: INFLIXIMAB-DYYB
     Dosage: 600 MG EVERY 4 WEEK
     Route: 042
     Dates: start: 20220318
  12. CHOLESTYRAMINE [Concomitant]
     Active Substance: CHOLESTYRAMINE
     Dosage: UNK
  13. CYMBALTA [Concomitant]
     Active Substance: DULOXETINE HYDROCHLORIDE
     Dosage: 30 MG, 1X/DAY
  14. DIPHENHYDRAMINE [Concomitant]
     Active Substance: DIPHENHYDRAMINE
     Indication: Premedication
     Dosage: 50 MG
     Route: 048
     Dates: start: 20210820
  15. FOLIC ACID [Concomitant]
     Active Substance: FOLIC ACID
     Dosage: UNK
  16. KETOPROFEN [Concomitant]
     Active Substance: KETOPROFEN
     Dosage: UNK
  17. METFORMIN [Concomitant]
     Active Substance: METFORMIN HYDROCHLORIDE
     Dosage: UNK
  18. METHOTREXATE [Concomitant]
     Active Substance: METHOTREXATE
     Indication: Psoriatic arthropathy
     Dosage: 2500 UG, 2X/WEEK
     Route: 065
  19. LORAZEPAM [Concomitant]
     Active Substance: LORAZEPAM
     Dosage: 1 MG, AS NEEDED (PO PRN)
     Route: 048
  20. PAROXETINE [Concomitant]
     Active Substance: PAROXETINE
     Dosage: 20 MG, DAILY
  21. PAROXETINE [Concomitant]
     Active Substance: PAROXETINE
     Dosage: 30 MG, DAILY
     Dates: start: 20220214
  22. RABEPRAZOLE [Concomitant]
     Active Substance: RABEPRAZOLE
     Dosage: UNK
  23. TRANDOLAPRIL [Concomitant]
     Active Substance: TRANDOLAPRIL
     Dosage: UNK
  24. CHOLECALCIFEROL [Concomitant]
     Active Substance: CHOLECALCIFEROL
     Dosage: UNK

REACTIONS (14)
  - Pruritus [Recovered/Resolved]
  - Flushing [Unknown]
  - Feeling hot [Unknown]
  - Dyspnoea [Unknown]
  - Erythema [Recovered/Resolved]
  - Nausea [Not Recovered/Not Resolved]
  - Dizziness [Recovering/Resolving]
  - Blood pressure fluctuation [Unknown]
  - Paronychia [Not Recovered/Not Resolved]
  - Headache [Not Recovered/Not Resolved]
  - Somnolence [Not Recovered/Not Resolved]
  - Erythema [Recovering/Resolving]
  - Anxiety [Unknown]
  - Off label use [Unknown]

NARRATIVE: CASE EVENT DATE: 20210101
